FAERS Safety Report 13227975 (Version 2)
Quarter: 2017Q1

REPORT INFORMATION
  Report Type: Report from Study
  Country: US (occurrence: US)
  Receive Date: 20170213
  Receipt Date: 20170223
  Transmission Date: 20170428
  Serious: Yes (Hospitalization)
  Sender: FDA-Public Use
  Company Number: US-ACTELION-A-NJ2016-146552

PATIENT
  Age: 64 Year
  Sex: Female
  Weight: 80.73 kg

DRUGS (7)
  1. OPSUMIT [Suspect]
     Active Substance: MACITENTAN
     Indication: PULMONARY ARTERIAL HYPERTENSION
     Dosage: 10 MG, QD
     Route: 048
     Dates: start: 20140417
  2. UPTRAVI [Suspect]
     Active Substance: SELEXIPAG
     Dosage: 400 MCG, BID
     Route: 048
     Dates: start: 20170106
  3. OXYGEN. [Concomitant]
     Active Substance: OXYGEN
     Dosage: 4 L/MIN, UNK
  4. ADCIRCA [Concomitant]
     Active Substance: TADALAFIL
  5. UPTRAVI [Suspect]
     Active Substance: SELEXIPAG
     Indication: PULMONARY ARTERIAL HYPERTENSION
     Dosage: 200 MCG, BID
     Route: 048
     Dates: start: 20161025
  6. UPTRAVI [Suspect]
     Active Substance: SELEXIPAG
     Dosage: 200 MCG, BID
     Route: 048
     Dates: start: 20161228
  7. UPTRAVI [Suspect]
     Active Substance: SELEXIPAG
     Dosage: 600 MCG, BID
     Route: 048
     Dates: start: 20170116, end: 20170131

REACTIONS (13)
  - Bronchospasm [Unknown]
  - Atrial fibrillation [Recovering/Resolving]
  - Palpitations [Recovering/Resolving]
  - Peripheral swelling [Unknown]
  - Malaise [Unknown]
  - Presyncope [Recovering/Resolving]
  - Upper respiratory tract infection [Unknown]
  - Abdominal discomfort [Unknown]
  - Pain in jaw [Unknown]
  - Gait disturbance [Unknown]
  - Diarrhoea [Unknown]
  - Myalgia [Unknown]
  - Chest pain [Recovering/Resolving]
